FAERS Safety Report 8421473 (Version 4)
Quarter: 2013Q3

REPORT INFORMATION
  Report Type: Report from Study
  Country: CA (occurrence: CA)
  Receive Date: 20120222
  Receipt Date: 20130920
  Transmission Date: 20140515
  Serious: Yes (Hospitalization, Disabling)
  Sender: FDA-Public Use
  Company Number: PHHO2011CA019601

PATIENT
  Age: 70 Year
  Sex: Male
  Weight: 61.8 kg

DRUGS (8)
  1. ALISKIREN [Suspect]
     Indication: CARDIOVASCULAR DISORDER
     Dosage: 150 MG, UNK
     Dates: start: 20111001, end: 20111109
  2. AMLODIPINE [Suspect]
     Indication: CARDIOVASCULAR DISORDER
     Dosage: 5 MG, UNK
     Dates: start: 20111001, end: 20111008
  3. HYDROCHLOROTHIAZIDE [Suspect]
     Dosage: 25 MG, UNK
     Dates: end: 20111109
  4. VALSARTAN [Suspect]
     Dosage: 160 MG, QD
  5. NO TREATMENT RECEIVED [Suspect]
     Indication: CARDIOVASCULAR DISORDER
     Dosage: ACTIVE RUN IN PHASE
  6. ASA [Concomitant]
  7. ATORVASTATIN [Concomitant]
  8. ANGIOTENSIN II ANTAGONISTS [Concomitant]

REACTIONS (2)
  - Hypotension [Recovered/Resolved]
  - Cerebral hypoperfusion [Recovered/Resolved]
